FAERS Safety Report 6208914-7 (Version None)
Quarter: 2009Q2

REPORT INFORMATION
  Report Type: 
  Country: None (occurrence: None)
  Receive Date: 20090529
  Receipt Date: 20090525
  Transmission Date: 20091009
  Serious: Yes (Other)
  Sender: FDA-Public Use
  Company Number: D0061728A

PATIENT
  Age: 77 Year
  Sex: Female

DRUGS (6)
  1. IMIGRAN [Suspect]
     Indication: MIGRAINE
     Route: 065
  2. FORMIGRAN [Suspect]
     Indication: MIGRAINE
     Route: 048
  3. TRAMADOL HCL [Concomitant]
     Route: 065
  4. MADOPAR [Concomitant]
     Route: 065
  5. CYMBALTA [Concomitant]
     Route: 048
  6. TOPAMAX [Concomitant]
     Route: 065

REACTIONS (1)
  - EPILEPSY [None]
